FAERS Safety Report 24585977 (Version 2)
Quarter: 2024Q4

REPORT INFORMATION
  Report Type: Report from Study
  Country: AU (occurrence: AU)
  Receive Date: 20241106
  Receipt Date: 20241111
  Transmission Date: 20250115
  Serious: No
  Sender: TRAVERE THERAPEUTICS
  Company Number: AU-Vifor (International) Inc.-VIT-2024-08493

PATIENT
  Sex: Male

DRUGS (1)
  1. FILSPARI [Suspect]
     Active Substance: SPARSENTAN
     Indication: IgA nephropathy

REACTIONS (3)
  - Product dose omission issue [Unknown]
  - Product distribution issue [Unknown]
  - No adverse event [Unknown]
